FAERS Safety Report 8101704-X (Version None)
Quarter: 2012Q1

REPORT INFORMATION
  Report Type: 
  Country: None (occurrence: None)
  Receive Date: 20120131
  Receipt Date: 20120124
  Transmission Date: 20120608
  Serious: Yes (Hospitalization)
  Sender: FDA-Public Use
  Company Number: US-PFIZER INC-K200901096

PATIENT
  Age: 79 Year
  Sex: Male

DRUGS (15)
  1. ACC LONG [Concomitant]
     Indication: CHRONIC OBSTRUCTIVE PULMONARY DISEASE
     Dosage: 600 MG, UNK
     Route: 048
     Dates: start: 20090801
  2. ASPIRIN [Concomitant]
     Indication: CORONARY ARTERY DISEASE
     Dosage: 50 MG, 1X/DAY
     Route: 048
     Dates: start: 19950101
  3. TRIAMCINOLONE ACETONIDE [Concomitant]
     Indication: SEASONAL ALLERGY
     Dosage: 0.2 G, UNK
     Route: 045
     Dates: start: 20090801
  4. SIMVASTATIN [Concomitant]
     Indication: HYPERCHOLESTEROLAEMIA
     Dosage: 40 MG, UNK
     Route: 048
     Dates: start: 20070101
  5. LYRICA [Concomitant]
     Indication: PAIN
     Dosage: 300 MG, 1X/DAY
     Route: 048
     Dates: start: 20070601
  6. NALOXONE/OXYCODONE [Concomitant]
     Indication: PAIN
     Dosage: 30 MG, 1X/DAY
     Route: 048
     Dates: start: 20070101
  7. ESOMEPRAZOLE [Concomitant]
     Dosage: UNK
     Dates: start: 20010101
  8. LEVOTHYROXINE SODIUM [Concomitant]
     Indication: HYPOTHYROIDISM
     Dosage: 50 U/G, UNK
     Route: 048
     Dates: start: 20070101
  9. TORSEMIDE [Concomitant]
     Indication: HYPERTENSION
     Dosage: 5 MG, UNK
     Route: 048
     Dates: start: 20070101
  10. NEXIUM [Concomitant]
     Indication: GASTRITIS
     Dosage: 20 MG, 1X/DAY
     Route: 048
     Dates: start: 20010101
  11. SPIRIVA [Concomitant]
     Indication: CHRONIC OBSTRUCTIVE PULMONARY DISEASE
     Dosage: 18 U/G, QD
     Route: 055
     Dates: start: 19800101
  12. AGGRENOX [Concomitant]
     Indication: THROMBOSIS PROPHYLAXIS
     Dosage: 450 MG, 1X/DAY
     Route: 048
     Dates: start: 20080801
  13. BIFITERAL [Concomitant]
     Indication: CONSTIPATION
     Dosage: 5 G, UNK
     Route: 048
     Dates: start: 20070101
  14. MIRTAZAPINE [Concomitant]
     Indication: DEPRESSION
     Dosage: 15 MG, UNK
     Route: 048
     Dates: start: 20070101
  15. ALTACE [Suspect]
     Indication: HYPERTENSION
     Dosage: 2.5 MG, 1X/DAY
     Route: 048
     Dates: start: 20070101, end: 20090818

REACTIONS (8)
  - DIZZINESS [None]
  - SKIN TIGHTNESS [None]
  - ANGIOEDEMA [None]
  - HYPERTENSIVE CRISIS [None]
  - DRUG INEFFECTIVE [None]
  - HEADACHE [None]
  - DYSPNOEA [None]
  - SWELLING FACE [None]
